FAERS Safety Report 6174985-X (Version None)
Quarter: 2009Q2

REPORT INFORMATION
  Report Type: 
  Country: None (occurrence: None)
  Receive Date: 20090430
  Receipt Date: 20081106
  Transmission Date: 20091009
  Serious: No
  Sender: FDA-Public Use
  Company Number: US-ASTRAZENECA-2008UW24820

PATIENT
  Age: 71 Year
  Sex: Female
  Weight: 76.2 kg

DRUGS (7)
  1. NEXIUM [Suspect]
     Indication: GASTROOESOPHAGEAL REFLUX DISEASE
     Dosage: 40 MG
     Route: 048
     Dates: start: 20071101
  2. LASIX [Concomitant]
  3. PEPCID [Concomitant]
  4. THYROLAR [Concomitant]
  5. VITAMIN B COMPLEX CAP [Concomitant]
  6. ASPIRIN [Concomitant]
     Indication: PAIN
  7. SUDAFED 12 HOUR [Concomitant]
     Dosage: PRN

REACTIONS (2)
  - BREATH ODOUR [None]
  - DYSGEUSIA [None]
